FAERS Safety Report 15124822 (Version 2)
Quarter: 2018Q3

REPORT INFORMATION
  Report Type: Spontaneous
  Country: PT (occurrence: PT)
  Receive Date: 20180710
  Receipt Date: 20180724
  Transmission Date: 20181010
  Serious: Yes (Hospitalization)
  Sender: FDA-Public Use
  Company Number: PT-ABBVIE-18K-130-2410670-00

PATIENT
  Age: 45 Year
  Sex: Female

DRUGS (12)
  1. PREZISTA [Suspect]
     Active Substance: DARUNAVIR ETHANOLATE
     Indication: HIV INFECTION
     Route: 048
     Dates: start: 20151227, end: 201702
  2. TIVICAY [Suspect]
     Active Substance: DOLUTEGRAVIR SODIUM
     Route: 065
     Dates: start: 201707
  3. NORVIR [Suspect]
     Active Substance: RITONAVIR
     Route: 048
     Dates: start: 201407
  4. NORVIR [Suspect]
     Active Substance: RITONAVIR
     Route: 048
     Dates: start: 2015, end: 20151204
  5. NORVIR [Suspect]
     Active Substance: RITONAVIR
     Dosage: DOSAGE FORM: UNSPECIFIED
     Route: 048
     Dates: start: 20151227, end: 201702
  6. NORVIR [Suspect]
     Active Substance: RITONAVIR
     Dosage: DOSAGE FORM: UNSPECIFIED
     Route: 048
     Dates: start: 201706
  7. TIVICAY [Suspect]
     Active Substance: DOLUTEGRAVIR SODIUM
     Indication: HIV INFECTION
     Route: 065
     Dates: start: 20151227, end: 201702
  8. NORVIR [Suspect]
     Active Substance: RITONAVIR
     Indication: HIV INFECTION
     Dosage: DOSAGE FORM: UNSPECIFIED
     Route: 048
     Dates: start: 2009, end: 2013
  9. PREZISTA [Suspect]
     Active Substance: DARUNAVIR ETHANOLATE
     Route: 048
     Dates: start: 2009, end: 2013
  10. TIVICAY [Suspect]
     Active Substance: DOLUTEGRAVIR SODIUM
     Route: 065
     Dates: start: 2015, end: 2015
  11. PREZISTA [Suspect]
     Active Substance: DARUNAVIR ETHANOLATE
     Route: 048
     Dates: start: 201706
  12. DESOGESTREL [Concomitant]
     Active Substance: DESOGESTREL
     Indication: HAEMORRHAGE
     Route: 065

REACTIONS (1)
  - Pneumonia [Recovered/Resolved]

NARRATIVE: CASE EVENT DATE: 20180616
